FAERS Safety Report 4959210-7 (Version None)
Quarter: 2006Q1

REPORT INFORMATION
  Report Type: 
  Country: None (occurrence: None)
  Receive Date: 20060331
  Receipt Date: 20060322
  Transmission Date: 20060701
  Serious: Yes (Other)
  Sender: FDA-Public Use
  Company Number: US-JNJFOC-20060306063

PATIENT
  Sex: Female
  Weight: 76.2 kg

DRUGS (8)
  1. REMICADE [Suspect]
     Indication: CROHN'S DISEASE
     Route: 042
  2. LOTENSIN [Concomitant]
  3. ZOLOFT [Concomitant]
  4. PREMARIN [Concomitant]
  5. KLONIPIN [Concomitant]
  6. MS COTIN [Concomitant]
  7. PAMELOR [Concomitant]
  8. SOMA [Concomitant]

REACTIONS (3)
  - ARTHRALGIA [None]
  - DIARRHOEA [None]
  - MUSCULOSKELETAL STIFFNESS [None]
